FAERS Safety Report 5402178-X (Version None)
Quarter: 2007Q3

REPORT INFORMATION
  Report Type: 
  Country: None (occurrence: None)
  Receive Date: 20070730
  Receipt Date: 20070723
  Transmission Date: 20080115
  Serious: Yes (Death, Hospitalization, Other)
  Sender: FDA-Public Use
  Company Number: 163-20785-07061368

PATIENT
  Age: 52 Year
  Sex: Male

DRUGS (11)
  1. THALOMID [Suspect]
     Indication: MYELODYSPLASTIC SYNDROME
     Dosage: 50 MG, 1 IN 1 D, ORAL
     Route: 048
     Dates: start: 20070524, end: 20070622
  2. GLYPENSA [Concomitant]
  3. LASIX [Concomitant]
  4. ADVOCIN [Concomitant]
  5. COREG [Concomitant]
  6. INSPRA [Concomitant]
  7. EFFEXOR [Concomitant]
  8. TRIPTAL (PROTRIPTYLINE HYDROCHLORIDE) [Concomitant]
  9. LISINOPRIL [Concomitant]
  10. OXYGEN (OXYGEN) [Concomitant]
  11. TRANSFUSION (BLOOD TRANSFUSION, AUXILIARY PRODUCTS) [Concomitant]

REACTIONS (6)
  - CHRONIC LYMPHOCYTIC LEUKAEMIA TRANSFORMATION [None]
  - MENTAL STATUS CHANGES [None]
  - RENAL FAILURE ACUTE [None]
  - RESPIRATORY FAILURE [None]
  - SEPSIS [None]
  - URINARY TRACT INFECTION [None]
